FAERS Safety Report 17777651 (Version 1)
Quarter: 2020Q2

REPORT INFORMATION
  Report Type: Spontaneous
  Country: US (occurrence: US)
  Receive Date: 20200513
  Receipt Date: 20200513
  Transmission Date: 20200714
  Serious: No
  Sender: FDA-Public Use
  Company Number: US-VANDA PHARMACEUTICALS, INC-2019ILOUS001775

PATIENT
  Sex: Female

DRUGS (3)
  1. FANAPT [Suspect]
     Active Substance: ILOPERIDONE
     Dosage: 2 MG, BID TWICE A DAY (2ND 2 WEEK TRIAL)
  2. FANAPT [Suspect]
     Active Substance: ILOPERIDONE
     Dosage: 2 MG, QD ONCE A DAY (FIRST 2 WEEK)
  3. FANAPT [Suspect]
     Active Substance: ILOPERIDONE
     Indication: PRODUCT USED FOR UNKNOWN INDICATION
     Dosage: 2 MG, TRIAL / FIRSTWEEK
     Route: 048

REACTIONS (3)
  - Inappropriate schedule of product administration [Unknown]
  - Micturition urgency [Recovered/Resolved]
  - Incontinence [Recovered/Resolved]
